FAERS Safety Report 5903519-7 (Version None)
Quarter: 2008Q3

REPORT INFORMATION
  Report Type: 
  Country: None (occurrence: None)
  Receive Date: 20080930
  Receipt Date: 20080922
  Transmission Date: 20090109
  Serious: Yes (Other)
  Sender: FDA-Public Use
  Company Number: US-KINGPHARMUSA00001-K200801107

PATIENT

DRUGS (5)
  1. LEVOXYL [Suspect]
     Dosage: 112 MCG, QD
     Route: 048
     Dates: start: 19980101
  2. LAMICTAL [Suspect]
     Indication: CONVULSION
     Dosage: 100 MG, QD
     Route: 048
     Dates: start: 20080601
  3. LEVETIRACETAM [Suspect]
     Dosage: UNK, BID
     Route: 048
     Dates: start: 20080501, end: 20080601
  4. FLUTICASONE W/SALMETEROL [Concomitant]
  5. FLUTICASONE PROPIONATE [Concomitant]

REACTIONS (8)
  - ANGER [None]
  - BALANCE DISORDER [None]
  - CONVULSION [None]
  - CRYING [None]
  - FEELING ABNORMAL [None]
  - GAIT DISTURBANCE [None]
  - WEIGHT INCREASED [None]
  - WEIGHT LOSS POOR [None]
